FAERS Safety Report 4715137-7 (Version None)
Quarter: 2005Q3

REPORT INFORMATION
  Report Type: 
  Country: None (occurrence: None)
  Receive Date: 20050715
  Receipt Date: 20050713
  Transmission Date: 20060218
  Serious: Yes (Other)
  Sender: FDA-Public Use
  Company Number: US-GLAXOSMITHKLINE-A0566103A

PATIENT
  Age: 97 Year
  Sex: Female

DRUGS (10)
  1. PAROXETINE HCL [Suspect]
     Indication: DEPRESSION
     Dosage: 1TAB PER DAY
     Route: 048
     Dates: start: 20050708, end: 20050709
  2. VASOTEC [Concomitant]
  3. ACIPHEX [Concomitant]
  4. ACTONEL [Concomitant]
  5. LASIX [Concomitant]
  6. DIGOXIN [Concomitant]
  7. COREG [Concomitant]
  8. QUINAGLUTE [Concomitant]
  9. ASPIRIN [Concomitant]
  10. IRON [Concomitant]

REACTIONS (4)
  - FAECAL INCONTINENCE [None]
  - FALL [None]
  - TREMOR [None]
  - URINARY INCONTINENCE [None]
